FAERS Safety Report 8003898-3 (Version None)
Quarter: 2011Q4

REPORT INFORMATION
  Report Type: 
  Country: None (occurrence: None)
  Receive Date: 20111222
  Receipt Date: 20111213
  Transmission Date: 20120403
  Serious: Yes (Other)
  Sender: FDA-Public Use
  Company Number: US-BAYER-2011-120546

PATIENT
  Sex: Male

DRUGS (2)
  1. ALKA-SELTZER PLUS COLD FORMULA ORANGE ZEST [Suspect]
     Dosage: 8 DF, UNK
     Route: 048
  2. NYQUIL [Suspect]
     Dosage: UNK

REACTIONS (1)
  - HALLUCINATION, VISUAL [None]
